FAERS Safety Report 25753475 (Version 1)
Quarter: 2025Q3

REPORT INFORMATION
  Report Type: Report from Study
  Country: GT (occurrence: GT)
  Receive Date: 20250903
  Receipt Date: 20250903
  Transmission Date: 20251021
  Serious: Yes (Death, Hospitalization, Other)
  Sender: TOLMAR
  Company Number: GT-TOLMAR, INC.-22GT036766

PATIENT
  Age: 82 Year
  Sex: Male

DRUGS (2)
  1. ELIGARD [Suspect]
     Active Substance: LEUPROLIDE ACETATE
     Indication: Prostate cancer
     Dosage: 45 MILLIGRAM, Q 6 MONTH
     Route: 058
  2. ELIGARD [Suspect]
     Active Substance: LEUPROLIDE ACETATE
     Indication: Prostate cancer

REACTIONS (6)
  - Death [Fatal]
  - Cholelithiasis [Not Recovered/Not Resolved]
  - Pneumonia [Not Recovered/Not Resolved]
  - Prostate cancer [Unknown]
  - Pain in extremity [Unknown]
  - Arthralgia [Unknown]

NARRATIVE: CASE EVENT DATE: 20220921
